FAERS Safety Report 4930782-1 (Version None)
Quarter: 2006Q1

REPORT INFORMATION
  Report Type: 
  Country: None (occurrence: None)
  Receive Date: 20060227
  Receipt Date: 20060214
  Transmission Date: 20060701
  Serious: Yes (Other)
  Sender: FDA-Public Use
  Company Number: 2003156411DE

PATIENT
  Age: 56 Year
  Sex: Male
  Weight: 44 kg

DRUGS (1)
  1. GENOTROPIN [Suspect]
     Indication: HYPOPITUITARISM
     Dosage: 5 MG (5 MG, DAILY), SUBCUTANEOUS
     Route: 058
     Dates: start: 20010503, end: 20011217

REACTIONS (2)
  - MYOSITIS [None]
  - PROSTATE CANCER [None]
